FAERS Safety Report 4333424-1 (Version None)
Quarter: 2004Q2

REPORT INFORMATION
  Report Type: 
  Country: None (occurrence: None)
  Receive Date: 20040401
  Receipt Date: 20040317
  Transmission Date: 20050107
  Serious: Yes (Congenital Anomaly)
  Sender: FDA-Public Use
  Company Number: 194816

PATIENT

DRUGS (1)
  1. AVONEX [Suspect]
     Indication: MULTIPLE SCLEROSIS
     Dates: start: 20020701, end: 20040101

REACTIONS (2)
  - CONGENITAL HYDROCEPHALUS [None]
  - MATERNAL DRUGS AFFECTING FOETUS [None]
